FAERS Safety Report 6357668-2 (Version None)
Quarter: 2009Q3

REPORT INFORMATION
  Report Type: 
  Country: None (occurrence: None)
  Receive Date: 20090916
  Receipt Date: 20090911
  Transmission Date: 20100115
  Serious: Yes (Death, Life-Threatening)
  Sender: FDA-Public Use
  Company Number: JP-BRISTOL-MYERS SQUIBB COMPANY-14699128

PATIENT
  Age: 14 Year
  Sex: Male
  Weight: 75 kg

DRUGS (2)
  1. FUNGIZONE [Suspect]
     Indication: FUNGAL INFECTION
     Route: 042
     Dates: start: 20080909, end: 20080924
  2. MICAFUNGIN SODIUM [Concomitant]
     Indication: FUNGAL INFECTION
     Dosage: 300MG/D(25SEP-28SEP09);150MG/D(29SEP-7OCT09)
     Route: 042
     Dates: start: 20080925

REACTIONS (4)
  - MULTI-ORGAN FAILURE [None]
  - STAPHYLOCOCCAL SEPSIS [None]
  - TORSADE DE POINTES [None]
  - VENTRICULAR FIBRILLATION [None]
